FAERS Safety Report 23327787 (Version 1)
Quarter: 2023Q4

REPORT INFORMATION
  Report Type: Spontaneous
  Country: US (occurrence: US)
  Receive Date: 20231221
  Receipt Date: 20231221
  Transmission Date: 20240110
  Serious: Yes (Other)
  Sender: FDA-Public Use
  Company Number: US-BRISTOL-MYERS SQUIBB COMPANY-2023-183287

PATIENT
  Age: 87 Year
  Sex: Female
  Weight: 46.72 kg

DRUGS (1)
  1. INREBIC [Suspect]
     Active Substance: FEDRATINIB HYDROCHLORIDE
     Indication: Myelofibrosis
     Dosage: 100MG ONCE DAILY ALTERNATING WITH 100MG TWICE DAILY
     Route: 048

REACTIONS (1)
  - Drug ineffective [Unknown]
